FAERS Safety Report 22013564 (Version 1)
Quarter: 2023Q1

REPORT INFORMATION
  Report Type: Spontaneous
  Country: CN (occurrence: CN)
  Receive Date: 20230220
  Receipt Date: 20230220
  Transmission Date: 20230417
  Serious: Yes (Other)
  Sender: FDA-Public Use
  Company Number: CN-SUN PHARMACEUTICAL INDUSTRIES LTD-2023R1-379524

PATIENT
  Age: 66 Year
  Sex: Female

DRUGS (4)
  1. DEXAMETHASONE [Suspect]
     Active Substance: DEXAMETHASONE
     Indication: Encephalopathy
     Dosage: UNK
     Route: 065
  2. MANNITOL [Suspect]
     Active Substance: MANNITOL
     Indication: Encephalopathy
     Dosage: UNK
     Route: 065
  3. THYROXINE [Suspect]
     Active Substance: LEVOTHYROXINE
     Indication: Encephalopathy
     Dosage: UNK
     Route: 065
  4. SODIUM CHLORIDE [Suspect]
     Active Substance: SODIUM CHLORIDE
     Indication: Encephalopathy
     Dosage: UNK
     Route: 065

REACTIONS (3)
  - Therapy partial responder [Unknown]
  - Disease recurrence [Unknown]
  - Amnesia [Unknown]
